FAERS Safety Report 12113865 (Version 1)
Quarter: 2016Q1

REPORT INFORMATION
  Report Type: Spontaneous
  Country: US (occurrence: None)
  Receive Date: 20160224
  Receipt Date: 20160224
  Transmission Date: 20160526
  Serious: Yes (Hospitalization)
  Sender: FDA-Public Use
  Company Number: None

PATIENT
  Age: 53 Year
  Sex: Female
  Weight: 99.55 kg

DRUGS (2)
  1. CARBOPLATIN. [Suspect]
     Active Substance: CARBOPLATIN
     Dates: end: 20130410
  2. TAXOL [Suspect]
     Active Substance: PACLITAXEL
     Dates: end: 20130410

REACTIONS (8)
  - Haematocrit decreased [None]
  - Haemoglobin decreased [None]
  - Platelet count decreased [None]
  - Musculoskeletal pain [None]
  - Blood pressure increased [None]
  - White blood cell count decreased [None]
  - Deep vein thrombosis [None]
  - Heart rate increased [None]

NARRATIVE: CASE EVENT DATE: 20130420
